FAERS Safety Report 18263084 (Version 2)
Quarter: 2020Q4

REPORT INFORMATION
  Report Type: Spontaneous
  Country: US (occurrence: US)
  Receive Date: 20200914
  Receipt Date: 20201010
  Transmission Date: 20210113
  Serious: Yes (Death, Other)
  Sender: FDA-Public Use
  Company Number: US-B.I. PHARMACEUTICALS,INC./RIDGEFIELD-2020-BI-047670

PATIENT
  Age: 69 Year
  Sex: Male
  Weight: 88.3 kg

DRUGS (1)
  1. PRADAXA [Suspect]
     Active Substance: DABIGATRAN ETEXILATE MESYLATE
     Indication: ATRIAL FIBRILLATION
     Dosage: 75 MG TWICE DAILY
     Dates: start: 20200527, end: 20200827

REACTIONS (4)
  - COVID-19 [Fatal]
  - Idiopathic pulmonary fibrosis [Recovered/Resolved]
  - Peripheral swelling [Unknown]
  - Dyspnoea [Recovered/Resolved]

NARRATIVE: CASE EVENT DATE: 20200824
